FAERS Safety Report 23318599 (Version 1)
Quarter: 2023Q4

REPORT INFORMATION
  Report Type: Report from Study
  Country: US (occurrence: US)
  Receive Date: 20231220
  Receipt Date: 20231220
  Transmission Date: 20240110
  Serious: Yes (Hospitalization)
  Sender: FDA-Public Use
  Company Number: US-JNJFOC-20231241373

PATIENT
  Age: 55 Year
  Sex: Male

DRUGS (5)
  1. SPRAVATO [Suspect]
     Active Substance: ESKETAMINE
     Indication: Depression
     Dosage: 56 MG, 1 TOTAL DOSES
     Dates: start: 20230308, end: 20230308
  2. SPRAVATO [Suspect]
     Active Substance: ESKETAMINE
     Dosage: 84 MG, 5 TOTAL DOSES
     Dates: start: 20230310, end: 20230418
  3. SPRAVATO [Suspect]
     Active Substance: ESKETAMINE
     Dosage: 56  MG, 2 TOTAL DOSES
     Dates: start: 20231114, end: 20231116
  4. SPRAVATO [Suspect]
     Active Substance: ESKETAMINE
     Dosage: 84 MG, 4 TOTAL DOSES
     Dates: start: 20231122, end: 20231207
  5. SPRAVATO [Suspect]
     Active Substance: ESKETAMINE
     Dosage: 84 MG, 1 TOTAL DOSES
     Dates: start: 20231212, end: 20231212

REACTIONS (1)
  - Suicidal ideation [Unknown]

NARRATIVE: CASE EVENT DATE: 20231212
